FAERS Safety Report 25628228 (Version 4)
Quarter: 2025Q4

REPORT INFORMATION
  Report Type: Report from Study
  Country: US (occurrence: US)
  Receive Date: 20250731
  Receipt Date: 20251215
  Transmission Date: 20260117
  Serious: Yes (Other)
  Sender: MERCK SHARP & DOHME LLC
  Company Number: US-009507513-2281357

PATIENT
  Age: 59 Year
  Sex: Female
  Weight: 64.9 kg

DRUGS (22)
  1. WINREVAIR [Suspect]
     Active Substance: SOTATERCEPT-CSRK
     Indication: Pulmonary arterial hypertension
  2. WINREVAIR [Suspect]
     Active Substance: SOTATERCEPT-CSRK
  3. WINREVAIR [Suspect]
     Active Substance: SOTATERCEPT-CSRK
  4. WINREVAIR [Suspect]
     Active Substance: SOTATERCEPT-CSRK
  5. SOTATERCEPT [Suspect]
     Active Substance: SOTATERCEPT
     Indication: Pulmonary arterial hypertension
     Route: 058
     Dates: start: 202408
  6. SOTATERCEPT [Suspect]
     Active Substance: SOTATERCEPT
  7. SOTATERCEPT [Suspect]
     Active Substance: SOTATERCEPT
  8. SOTATERCEPT [Suspect]
     Active Substance: SOTATERCEPT
  9. OMEPRAZOLE [Concomitant]
     Active Substance: OMEPRAZOLE
  10. LEVOTHYROXINE SODIUM [Concomitant]
     Active Substance: LEVOTHYROXINE SODIUM
  11. MELATONIN [Concomitant]
     Active Substance: MELATONIN
  12. OFEV [Concomitant]
     Active Substance: NINTEDANIB
  13. JARDIANCE [Concomitant]
     Active Substance: EMPAGLIFLOZIN
  14. ACTEMRA [Concomitant]
     Active Substance: TOCILIZUMAB
  15. ATORVASTATIN CALCIUM [Concomitant]
     Active Substance: ATORVASTATIN CALCIUM
  16. SILDENAFIL CITRATE [Concomitant]
     Active Substance: SILDENAFIL CITRATE
  17. TRAMADOL HCL [Concomitant]
     Active Substance: TRAMADOL HYDROCHLORIDE
  18. OXYGEN [Concomitant]
     Active Substance: OXYGEN
  19. PREDNISONE [Concomitant]
     Active Substance: PREDNISONE
  20. TYVASO [Concomitant]
     Active Substance: TREPROSTINIL
  21. TRIAMCINOLONE ACETONIDE [Concomitant]
     Active Substance: TRIAMCINOLONE ACETONIDE
  22. UPTRAVI [Suspect]
     Active Substance: SELEXIPAG
     Indication: Pulmonary arterial hypertension

REACTIONS (8)
  - Diarrhoea haemorrhagic [Unknown]
  - Eye haemorrhage [Recovered/Resolved]
  - Drug effect less than expected [Unknown]
  - Intestinal haemorrhage [Recovered/Resolved]
  - Rectal haemorrhage [Unknown]
  - Ventilation perfusion mismatch [Unknown]
  - Dyspnoea [Unknown]
  - Skin haemorrhage [Recovered/Resolved]

NARRATIVE: CASE EVENT DATE: 20250417
